FAERS Safety Report 8990787 (Version 1)
Quarter: 2012Q4

REPORT INFORMATION
  Report Type: Spontaneous
  Country: US (occurrence: None)
  Receive Date: 20121226
  Receipt Date: 20121226
  Transmission Date: 20130627
  Serious: Yes (Hospitalization)
  Sender: FDA-Public Use
  Company Number: None

PATIENT
  Age: 70 Year
  Sex: Male

DRUGS (1)
  1. AVONEX PFS 30MCG BIOGEN [Suspect]
     Indication: MS
     Dosage: 30mcg Q week IM
     Route: 030
     Dates: start: 201205

REACTIONS (7)
  - Orthostatic hypotension [None]
  - Fall [None]
  - Laceration [None]
  - Pneumonia [None]
  - Urinary tract infection [None]
  - Cognitive disorder [None]
  - Urinary incontinence [None]
